FAERS Safety Report 4962168-8 (Version None)
Quarter: 2006Q2

REPORT INFORMATION
  Report Type: 
  Country: None (occurrence: None)
  Receive Date: 20060403
  Receipt Date: 20060403
  Transmission Date: 20061013
  Serious: Yes (Hospitalization)
  Sender: FDA-Public Use
  Company Number: None

PATIENT
  Age: 45 Year
  Sex: Male
  Weight: 87.0906 kg

DRUGS (12)
  1. CLOZARIL [Suspect]
     Indication: SCHIZOPHRENIA
     Dosage: 400MG  BEDTIME  PO
     Route: 048
     Dates: start: 20050405, end: 20060330
  2. TYLENOL (CAPLET) [Concomitant]
  3. DESMOPRESSIN [Concomitant]
  4. FLUVOXAMINE [Concomitant]
  5. LORAZEPAM [Concomitant]
  6. METFORMIN [Concomitant]
  7. METOPROLOL [Concomitant]
  8. OLANZAPINE [Concomitant]
  9. PAROXETINE HCL [Concomitant]
  10. QUETIAPINE [Concomitant]
  11. SIMVASTATIN [Concomitant]
  12. DEPAKOTE [Concomitant]

REACTIONS (2)
  - CARDIAC DISORDER [None]
  - CARDIOMYOPATHY [None]
